FAERS Safety Report 7812493 (Version 5)
Quarter: 2016Q4

REPORT INFORMATION
  Report Type: Report from Study
  Country: FR (occurrence: FR)
  Receive Date: 20110215
  Receipt Date: 20161024
  Transmission Date: 20170207
  Serious: Yes (Hospitalization)
  Sender: FDA-Public Use
  Company Number: FR-JNJFOC-20110202008

PATIENT
  Age: 61 Year
  Sex: Male
  Weight: 87 kg

DRUGS (12)
  1. TAZOCILLINE [Concomitant]
     Active Substance: PIPERACILLIN SODIUM\TAZOBACTAM SODIUM
  2. TRIATEC [Concomitant]
     Active Substance: RAMIPRIL
  3. TEMERIT [Concomitant]
     Active Substance: NEBIVOLOL
  4. TAHOR [Concomitant]
     Active Substance: ATORVASTATIN CALCIUM
  5. MORPHINE [Concomitant]
     Active Substance: MORPHINE
     Dosage: 30 MG/24 H AND ADDITIONAL DOSE IF NEEDED 3 MG
  6. LOVENOX [Concomitant]
     Active Substance: ENOXAPARIN SODIUM
     Route: 065
     Dates: start: 20101104, end: 20101202
  7. PERFALGAN [Concomitant]
     Active Substance: ACETAMINOPHEN
  8. TRIFLUCAN [Concomitant]
     Active Substance: FLUCONAZOLE
  9. PLAVIX [Concomitant]
     Active Substance: CLOPIDOGREL BISULFATE
  10. REMICADE [Suspect]
     Active Substance: INFLIXIMAB
     Indication: COLITIS ULCERATIVE
     Dosage: 760 MG
     Route: 042
  11. ROVALCYTE [Concomitant]
     Active Substance: VALGANCICLOVIR HYDROCHLORIDE
  12. REMICADE [Suspect]
     Active Substance: INFLIXIMAB
     Indication: COLITIS ULCERATIVE
     Dosage: 760 MG
     Route: 042
     Dates: start: 20101026

REACTIONS (1)
  - Colitis ulcerative [Recovered/Resolved]

NARRATIVE: CASE EVENT DATE: 20101114
